FAERS Safety Report 6554748-3 (Version None)
Quarter: 2010Q1

REPORT INFORMATION
  Report Type: 
  Country: None (occurrence: None)
  Receive Date: 20100125
  Receipt Date: 20100118
  Transmission Date: 20100710
  Serious: Yes (Hospitalization, Other)
  Sender: FDA-Public Use
  Company Number: 10NL001244

PATIENT
  Age: 31 Year
  Sex: Female

DRUGS (5)
  1. VALPROIC ACID [Suspect]
     Indication: MIGRAINE
     Dosage: 300 MG
  2. OXAZEPAM [Concomitant]
  3. TEMAZEPAM [Concomitant]
  4. INDOMETHACIN [Concomitant]
  5. ACETAMINOPHEN [Concomitant]

REACTIONS (18)
  - BLOOD LACTIC ACID INCREASED [None]
  - COMA [None]
  - CONTINUOUS HAEMODIAFILTRATION [None]
  - DEPRESSED LEVEL OF CONSCIOUSNESS [None]
  - DRUG TOXICITY [None]
  - ELECTROCARDIOGRAM QT PROLONGED [None]
  - HYPERAMMONAEMIA [None]
  - HYPERKALAEMIA [None]
  - HYPOALBUMINAEMIA [None]
  - HYPOGLYCAEMIA [None]
  - HYPOTENSION [None]
  - HYPOTHERMIA [None]
  - INTENTIONAL OVERDOSE [None]
  - METABOLIC ACIDOSIS [None]
  - RESPIRATORY ACIDOSIS [None]
  - RESPIRATORY DEPRESSION [None]
  - SINUS BRADYCARDIA [None]
  - SUICIDE ATTEMPT [None]
